FAERS Safety Report 21050267 (Version 1)
Quarter: 2022Q3

REPORT INFORMATION
  Report Type: Spontaneous
  Country: DE (occurrence: DE)
  Receive Date: 20220706
  Receipt Date: 20220706
  Transmission Date: 20221027
  Serious: Yes (Other)
  Sender: FDA-Public Use
  Company Number: DE-NOVARTISPH-NVSC2022DE152022

PATIENT
  Age: 22 Year
  Sex: Male

DRUGS (6)
  1. LORAZEPAM [Suspect]
     Active Substance: LORAZEPAM
     Indication: Agitation
     Dosage: UNK
     Route: 065
     Dates: start: 201909
  2. LORAZEPAM [Suspect]
     Active Substance: LORAZEPAM
     Indication: Disorientation
  3. PROMETHAZINE [Suspect]
     Active Substance: PROMETHAZINE HYDROCHLORIDE
     Indication: Agitation
     Dosage: UNK
     Route: 065
     Dates: start: 201909
  4. PROMETHAZINE [Suspect]
     Active Substance: PROMETHAZINE HYDROCHLORIDE
     Indication: Disorientation
  5. OLANZAPINE [Suspect]
     Active Substance: OLANZAPINE
     Indication: Agitation
     Dosage: UNK
     Route: 065
     Dates: start: 201909
  6. OLANZAPINE [Suspect]
     Active Substance: OLANZAPINE
     Indication: Disorientation

REACTIONS (3)
  - Agitation [Recovered/Resolved]
  - Drug ineffective [Unknown]
  - Product use in unapproved indication [Unknown]

NARRATIVE: CASE EVENT DATE: 20190901
